FAERS Safety Report 8808515 (Version 1)
Quarter: 2012Q4

REPORT INFORMATION
  Report Type: Spontaneous
  Country: US (occurrence: None)
  Receive Date: 20120920
  Receipt Date: 20120920
  Transmission Date: 20130627
  Serious: Yes (Life-Threatening, Hospitalization)
  Sender: FDA-Public Use
  Company Number: None

PATIENT
  Age: 18 Year
  Sex: Female
  Weight: 56.7 kg

DRUGS (1)
  1. LOESTRIN 24 FE [Suspect]
     Indication: ORAL CONTRACEPTIVE
     Dosage: one pill daily po
     Route: 048
     Dates: start: 20070301, end: 20070901

REACTIONS (2)
  - Deep vein thrombosis [None]
  - Pulmonary embolism [None]
